FAERS Safety Report 4279572-6 (Version None)
Quarter: 2004Q1

REPORT INFORMATION
  Report Type: 
  Country: None (occurrence: None)
  Receive Date: 20040123
  Receipt Date: 20040114
  Transmission Date: 20041129
  Serious: Yes (Death)
  Sender: FDA-Public Use
  Company Number: 2004194588GB

PATIENT

DRUGS (1)
  1. HEPARIN SODIUM [Suspect]

REACTIONS (3)
  - ACCIDENTAL EXPOSURE [None]
  - CEREBRAL HAEMORRHAGE NEONATAL [None]
  - MEDICATION ERROR [None]
